FAERS Safety Report 6031453-3 (Version None)
Quarter: 2008Q4

REPORT INFORMATION
  Report Type: 
  Country: None (occurrence: None)
  Receive Date: 20081224
  Receipt Date: 20071227
  Transmission Date: 20090506
  Serious: Yes (Hospitalization, Other)
  Sender: FDA-Public Use
  Company Number: FEI2007-0744

PATIENT
  Age: 20 Year
  Sex: Female
  Weight: 95.2554 kg

DRUGS (5)
  1. PARAGARD T 380A [Suspect]
     Indication: CONTRACEPTION
     Dosage: INTRA-UTERINE
     Route: 015
     Dates: start: 20060919, end: 20070427
  2. TERBUTALINE (TERBUTALINE) (UNKNOWN) [Concomitant]
  3. NIFEDIPINE [Concomitant]
  4. MAGNESIUM SULFATE [Concomitant]
  5. PRECARE VITAMIN (PRECARE) [Concomitant]

REACTIONS (2)
  - PREMATURE LABOUR [None]
  - UNINTENDED PREGNANCY [None]
